FAERS Safety Report 11945449 (Version 1)
Quarter: 2016Q1

REPORT INFORMATION
  Report Type: Spontaneous
  Country: CN (occurrence: CN)
  Receive Date: 20160125
  Receipt Date: 20160125
  Transmission Date: 20160526
  Serious: Yes (Hospitalization)
  Sender: FDA-Public Use
  Company Number: CN-ELI_LILLY_AND_COMPANY-CN201601005445

PATIENT
  Age: 54 Year
  Sex: Female
  Weight: 53 kg

DRUGS (8)
  1. HUMULIN R [Suspect]
     Active Substance: INSULIN HUMAN
     Dosage: 8 DF, EACH EVENING
     Route: 058
     Dates: end: 201510
  2. HUMULIN 70/30 [Suspect]
     Active Substance: INSULIN HUMAN
     Dosage: 8 DF, EACH EVENING
     Route: 058
     Dates: start: 201510, end: 20160110
  3. ACARBOSE. [Concomitant]
     Active Substance: ACARBOSE
     Dosage: UNK, UNKNOWN
     Route: 065
  4. HUMULIN R [Suspect]
     Active Substance: INSULIN HUMAN
     Dosage: 4 DF, QD
     Route: 058
     Dates: start: 201301
  5. HUMULIN R [Suspect]
     Active Substance: INSULIN HUMAN
     Dosage: 12 DF, EACH EVENING
     Route: 058
     Dates: start: 201301
  6. HUMULIN 70/30 [Suspect]
     Active Substance: INSULIN HUMAN
     Indication: DIABETES MELLITUS
     Dosage: 6 DF, EACH MORNING
     Route: 058
     Dates: start: 201510, end: 20160110
  7. HUMULIN R [Suspect]
     Active Substance: INSULIN HUMAN
     Indication: DIABETES MELLITUS
     Dosage: 3 DF, EACH MORNING
     Route: 058
     Dates: start: 201301
  8. HUMULIN R [Suspect]
     Active Substance: INSULIN HUMAN
     Dosage: 4 DF, EACH MORNING
     Route: 058
     Dates: end: 201510

REACTIONS (3)
  - Azotaemia [Unknown]
  - Drug dose omission [Unknown]
  - Dizziness [Unknown]

NARRATIVE: CASE EVENT DATE: 20160110
